FAERS Safety Report 26054769 (Version 1)
Quarter: 2025Q4

REPORT INFORMATION
  Report Type: Report from Study
  Country: US (occurrence: US)
  Receive Date: 20251117
  Receipt Date: 20251117
  Transmission Date: 20260118
  Serious: Yes (Hospitalization, Other)
  Sender: ABBVIE
  Company Number: US-ABBVIE-6516487

PATIENT
  Age: 78 Year
  Sex: Male

DRUGS (2)
  1. CREON [Suspect]
     Active Substance: PANCRELIPASE AMYLASE\PANCRELIPASE LIPASE\PANCRELIPASE PROTEASE
     Indication: Pancreatic failure
     Dosage: DOSE: 36000 DOSAGE FORM
     Route: 048
     Dates: start: 20251003, end: 20251019
  2. CREON [Suspect]
     Active Substance: PANCRELIPASE AMYLASE\PANCRELIPASE LIPASE\PANCRELIPASE PROTEASE
     Indication: Pancreatic failure
     Dosage: LAST ADMIN DATE 2025
     Route: 048
     Dates: start: 20250407

REACTIONS (10)
  - Heart rate decreased [Unknown]
  - Gallbladder hypofunction [Not Recovered/Not Resolved]
  - Arthritis [Recovered/Resolved]
  - Dizziness [Recovered/Resolved]
  - Arthralgia [Recovered/Resolved]
  - Joint swelling [Not Recovered/Not Resolved]
  - Peripheral swelling [Recovering/Resolving]
  - Diarrhoea [Not Recovered/Not Resolved]
  - Pancreatic failure [Not Recovered/Not Resolved]
  - Arthritis [Not Recovered/Not Resolved]

NARRATIVE: CASE EVENT DATE: 20250101
